FAERS Safety Report 15679146 (Version 2)
Quarter: 2019Q1

REPORT INFORMATION
  Report Type: Spontaneous
  Country: BW (occurrence: BW)
  Receive Date: 20181203
  Receipt Date: 20190108
  Transmission Date: 20190417
  Serious: Yes (Congenital Anomaly, Other)
  Sender: FDA-Public Use
  Company Number: BW-AUROBINDO-AUR-APL-2018-057251

PATIENT
  Age: 40 Week
  Sex: Male
  Weight: 3.23 kg

DRUGS (2)
  1. EMTRICITABINE AND TENOFOVIR [Suspect]
     Active Substance: EMTRICITABINE\TENOFOVIR
     Indication: HIV INFECTION
     Dosage: UNK
     Route: 064
     Dates: start: 20180208
  2. TIVICAY [Suspect]
     Active Substance: DOLUTEGRAVIR SODIUM
     Indication: HIV INFECTION
     Dosage: UNK
     Route: 064
     Dates: start: 20180208

REACTIONS (10)
  - Dysmorphism [Unknown]
  - Anomaly of external ear congenital [Unknown]
  - Arachnodactyly [Unknown]
  - Foetal exposure during pregnancy [Unknown]
  - Micrognathia [Unknown]
  - Trisomy 18 [Unknown]
  - Congenital foot malformation [Unknown]
  - Head lag abnormal [Unknown]
  - Talipes [Unknown]
  - Low set ears [Unknown]
